FAERS Safety Report 7155052-5 (Version None)
Quarter: 2010Q4

REPORT INFORMATION
  Report Type: 
  Country: None (occurrence: None)
  Receive Date: 20101214
  Receipt Date: 20100126
  Transmission Date: 20110411
  Serious: Yes (Hospitalization, Disabling)
  Sender: FDA-Public Use
  Company Number: US-AMGEN-KDL287148

PATIENT

DRUGS (10)
  1. ENBREL [Suspect]
     Indication: PSORIATIC ARTHROPATHY
     Dosage: 50 MG, 2 TIMES/WK
     Route: 058
     Dates: start: 20021219, end: 20080501
  2. ENBREL [Suspect]
     Indication: PSORIASIS
  3. ENBREL [Suspect]
     Indication: JUVENILE ARTHRITIS
  4. AMLODIPINE BESYLATE [Concomitant]
     Dosage: UNK UNK, UNK
     Dates: start: 20030101
  5. TRIAMTERENE AND HYDROCHLOROTHIAZIDE [Concomitant]
     Dosage: UNK UNK, UNK
     Dates: start: 20030101
  6. LISINOPRIL [Concomitant]
     Dosage: UNK UNK, UNK
     Dates: start: 20030101
  7. GLIPIZIDE [Concomitant]
     Dosage: UNK UNK, UNK
     Dates: start: 20030101
  8. CLOZAPINE [Concomitant]
     Dosage: UNK UNK, UNK
     Dates: start: 20030101
  9. SERTRALINE HYDROCHLORIDE [Concomitant]
     Dosage: UNK UNK, UNK
     Dates: start: 20030101
  10. UNSPECIFIED MEDICATION [Concomitant]
     Dosage: UNK UNK, UNK
     Dates: start: 20030101

REACTIONS (1)
  - MULTIPLE SCLEROSIS [None]
